FAERS Safety Report 12236924 (Version 2)
Quarter: 2016Q2

REPORT INFORMATION
  Report Type: Spontaneous
  Country: GB (occurrence: GB)
  Receive Date: 20160405
  Receipt Date: 20160406
  Transmission Date: 20160815
  Serious: Yes (Disabling)
  Sender: FDA-Public Use
  Company Number: GB-JNJFOC-20160323610

PATIENT
  Age: 82 Year
  Sex: Female
  Weight: 71 kg

DRUGS (23)
  1. PIOGLITAZONE. [Concomitant]
     Active Substance: PIOGLITAZONE
     Indication: PRODUCT USED FOR UNKNOWN INDICATION
     Dosage: 1 DOSES (UNITS UNSPECIFIED) ONCE A DAY. CUMULATIVE DOSE: 1154.0
     Route: 065
     Dates: start: 20130117, end: 20160104
  2. IBUPROFEN. [Suspect]
     Active Substance: IBUPROFEN
     Route: 065
  3. DILTIAZEM [Concomitant]
     Active Substance: DILTIAZEM
     Indication: PRODUCT USED FOR UNKNOWN INDICATION
     Dosage: 1 DOSE (UNIT UNSPECIFIED) IN A DAY. CUMULATIVE DOSE: 54
     Route: 065
     Dates: start: 20160122, end: 20160122
  4. FUROSEMIDE. [Concomitant]
     Active Substance: FUROSEMIDE
     Indication: PRODUCT USED FOR UNKNOWN INDICATION
     Dosage: 2 DOSE (UNITS UNSPECIFIED) 1 IN 1 DAY EACH MORNING. CUMULATIVE DOSE: 128
     Route: 065
     Dates: start: 20160112, end: 20160209
  5. BUMETANIDE. [Concomitant]
     Active Substance: BUMETANIDE
     Indication: PRODUCT USED FOR UNKNOWN INDICATION
     Dosage: 3 DOSE (UNSP. UNIT), 1IN1 DAY. CUMULATIVE DOSE:162 (UNSPECIFIED UNIT).2 EACH MORNING, 1 AT LUNCHTIME
     Route: 065
     Dates: start: 20160122
  6. CODEINE PHOSPHATE [Concomitant]
     Active Substance: CODEINE PHOSPHATE
     Indication: PRODUCT USED FOR UNKNOWN INDICATION
     Dosage: 1 OR 2 FOUR TIMES A DAY AS REQUIRED
     Route: 065
     Dates: start: 20160314
  7. SALBUTAMOL [Concomitant]
     Active Substance: ALBUTEROL
     Indication: PRODUCT USED FOR UNKNOWN INDICATION
     Dosage: 2 DOSE AS REQUIRED
     Route: 065
     Dates: start: 20160112
  8. IBUPROFEN. [Suspect]
     Active Substance: IBUPROFEN
     Indication: PRODUCT USED FOR UNKNOWN INDICATION
     Route: 065
     Dates: start: 20160316
  9. CIPROFLOXACIN. [Concomitant]
     Active Substance: CIPROFLOXACIN
     Indication: PRODUCT USED FOR UNKNOWN INDICATION
     Dosage: 1 DOSE (UNIT UNSPECIFIED) TWICE A DAY. CUMULATIVE DOSE: 170
     Route: 065
     Dates: start: 20151222, end: 20151229
  10. FLUCLOXACILLIN [Concomitant]
     Active Substance: FLUCLOXACILLIN
     Indication: PRODUCT USED FOR UNKNOWN INDICATION
     Dosage: 1 DOSE (UNITS UNSPECIFIED) 4 TIMES IN  1 DAY. CUMULATIVE DOSE: 144.
     Route: 065
     Dates: start: 20160209, end: 20160216
  11. ALENDRONIC ACID [Concomitant]
     Active Substance: ALENDRONIC ACID
     Indication: PRODUCT USED FOR UNKNOWN INDICATION
     Dosage: 1 DOSE (UNSPECIFIED UNIT) IN 1 WEEK.
     Route: 065
     Dates: start: 20110831, end: 20160303
  12. PARACETAMOL [Concomitant]
     Active Substance: ACETAMINOPHEN
     Indication: PRODUCT USED FOR UNKNOWN INDICATION
     Dosage: 1 OR 2 FOUR TIMES A DAY
     Route: 065
     Dates: start: 20160209, end: 20160219
  13. SIMVASTATIN. [Concomitant]
     Active Substance: SIMVASTATIN
     Indication: PRODUCT USED FOR UNKNOWN INDICATION
     Dosage: 1 DOSE (UNITS UNSPECIFIED) ONCE A DAY (AT NIGHT). CUMULATIVE DOSE: 4586.04166
     Route: 065
     Dates: start: 20030826
  14. DALTEPARIN [Concomitant]
     Active Substance: DALTEPARIN
     Indication: PRODUCT USED FOR UNKNOWN INDICATION
     Route: 065
     Dates: start: 20151224, end: 20151229
  15. DIPROBASE [Concomitant]
     Active Substance: CHLOROCRESOL
     Indication: PRODUCT USED FOR UNKNOWN INDICATION
     Dosage: DOSAGE TEXT: APPLY. INTERVAL: AS REQUIRED.
     Route: 065
     Dates: start: 20160222
  16. SENNA [Concomitant]
     Active Substance: SENNA LEAF\SENNOSIDES\SENNOSIDES A AND B
     Indication: PRODUCT USED FOR UNKNOWN INDICATION
     Dosage: 2 DOSES (UNITS UNSPECIFIED) ONCE IN 1 DAY (AT NIGHT). CUMULATIVE DOSE: 2116.08333
     Route: 065
     Dates: start: 20130423
  17. CALCICHEW D3 [Concomitant]
     Active Substance: CALCIUM\CHOLECALCIFEROL
     Indication: PRODUCT USED FOR UNKNOWN INDICATION
     Dosage: 1 DOSE (UNIT UNKNOWN) TWICE A DAY. CUMULATIVE DOSE: 276
     Route: 065
     Dates: start: 20151030
  18. LISINOPRIL. [Concomitant]
     Active Substance: LISINOPRIL
     Indication: PRODUCT USED FOR UNKNOWN INDICATION
     Dosage: 1 DOSES (UNITS UNSPECIFIED) 1IN 1 DAY. CUMULATIVE DOSE: 2766.04166
     Route: 065
     Dates: start: 20080819
  19. ASPIRIN. [Concomitant]
     Active Substance: ASPIRIN
     Indication: PRODUCT USED FOR UNKNOWN INDICATION
     Dosage: 1 DOSE (UNITS UNSPECIFIED) IN 1 DAY. CUMULATIVE DOSE: 2031.04166
     Route: 065
     Dates: start: 20100824, end: 20160126
  20. AMITRIPTYLINE HYDROCHLORIDE. [Concomitant]
     Active Substance: AMITRIPTYLINE HYDROCHLORIDE
     Indication: PRODUCT USED FOR UNKNOWN INDICATION
     Dosage: 1 DOSE (UNITS UNSPECIFIED) IN 1 DAY (EACH NIGHT).CUMULATIVE DOSE: 48 (UNITS UNSPECIFIED).
     Route: 065
     Dates: start: 20160128
  21. WARFARIN SODIUM. [Concomitant]
     Active Substance: WARFARIN SODIUM
     Indication: ANTICOAGULANT THERAPY
     Dosage: 1 DOSE (UNSPECIFIED UNIT) AS DIRESTED BY ANTICOAGULANT CLINIC
     Route: 065
     Dates: start: 20160122
  22. GLICLAZIDE [Concomitant]
     Active Substance: GLICLAZIDE
     Indication: PRODUCT USED FOR UNKNOWN INDICATION
     Dosage: 2 DOSES (UNITS UNSPECIFIED) TWICE IN 1 DAY. CUMULATIVE DOSE: 17468.1666
     Route: 065
     Dates: start: 20040401
  23. TILDIEM [Concomitant]
     Active Substance: DILTIAZEM HYDROCHLORIDE
     Indication: PRODUCT USED FOR UNKNOWN INDICATION
     Dosage: 1 DOSE (UNITS UNSPECIFIED) ONCE A DAY. CUMULATIVE DOSE: 567.041666
     Route: 065
     Dates: start: 20140827

REACTIONS (1)
  - Vomiting [Recovered/Resolved]

NARRATIVE: CASE EVENT DATE: 20160316
